FAERS Safety Report 7021437-0 (Version None)
Quarter: 2010Q3

REPORT INFORMATION
  Report Type: 
  Country: None (occurrence: None)
  Receive Date: 20100929
  Receipt Date: 20100922
  Transmission Date: 20110219
  Serious: Yes (Other)
  Sender: FDA-Public Use
  Company Number: DE-AMGEN-QUU440009

PATIENT
  Sex: Male

DRUGS (2)
  1. VECTIBIX [Suspect]
     Indication: COLORECTAL CANCER
  2. CETUXIMAB [Concomitant]

REACTIONS (9)
  - ANAL HAEMORRHAGE [None]
  - BLOOD URINE PRESENT [None]
  - DYSPHONIA [None]
  - EPISTAXIS [None]
  - HEADACHE [None]
  - MALAISE [None]
  - MUSCLE SPASMS [None]
  - OEDEMA PERIPHERAL [None]
  - SWOLLEN TONGUE [None]
